FAERS Safety Report 8219079-4 (Version None)
Quarter: 2012Q1

REPORT INFORMATION
  Report Type: 
  Country: None (occurrence: None)
  Receive Date: 20120307
  Receipt Date: 20110714
  Transmission Date: 20120608
  Serious: Yes (Other)
  Sender: FDA-Public Use
  Company Number: 163-21660-11053001

PATIENT
  Age: 64 Year
  Sex: Female
  Weight: 92.0802 kg

DRUGS (9)
  1. SOLU-MEDROL [Concomitant]
  2. PEPCID [Concomitant]
  3. PHENERGAN HCL [Concomitant]
  4. ABRAXANE [Suspect]
     Indication: BREAST CANCER METASTATIC
     Dosage: 200 MG, Q WEEK X3 WEEKS; THEN OFF 1 WEEK, IV
     Route: 042
     Dates: start: 20110406, end: 20110520
  5. DEMEROL [Concomitant]
  6. ATIVAN [Concomitant]
  7. CRESTOR [Concomitant]
  8. DIOVAN [Concomitant]
  9. BENADRYL [Concomitant]

REACTIONS (5)
  - NAUSEA [None]
  - CHEST PAIN [None]
  - NECK PAIN [None]
  - BLOOD PRESSURE INCREASED [None]
  - HYPERSENSITIVITY [None]
